FAERS Safety Report 4830527-X (Version None)
Quarter: 2005Q4

REPORT INFORMATION
  Report Type: 
  Country: None (occurrence: None)
  Receive Date: 20051117
  Receipt Date: 20051109
  Transmission Date: 20060501
  Serious: Yes (Other)
  Sender: FDA-Public Use
  Company Number: PHBS2005JP16429

PATIENT
  Age: 63 Year
  Sex: Female

DRUGS (2)
  1. CYCLOSPORINE [Suspect]
     Indication: INTERSTITIAL LUNG DISEASE
     Route: 065
  2. LITHIUM [Suspect]
     Indication: BIPOLAR DISORDER
     Route: 065

REACTIONS (4)
  - ANTIPSYCHOTIC DRUG LEVEL INCREASED [None]
  - DISEASE PROGRESSION [None]
  - DRUG INTERACTION [None]
  - PSYCHIATRIC SYMPTOM [None]
